FAERS Safety Report 8476064-5 (Version None)
Quarter: 2012Q2

REPORT INFORMATION
  Report Type: 
  Country: None (occurrence: None)
  Receive Date: 20120628
  Receipt Date: 20120621
  Transmission Date: 20120825
  Serious: Yes (Hospitalization)
  Sender: FDA-Public Use
  Company Number: DE-ROCHE-1080885

PATIENT
  Age: 41 Year
  Sex: Female
  Weight: 49 kg

DRUGS (3)
  1. AVASTIN [Suspect]
     Indication: OVARIAN CANCER
     Dosage: 645MG, LAST DOSE PRIOR TO SAE ON 15/MAY/2012
     Route: 042
     Dates: start: 20111219
  2. CARBOPLATIN [Suspect]
     Indication: OVARIAN CANCER
     Dosage: AUC5, LAST DOSE PRIOR TO SAE ON 03/APR/2012
     Route: 042
     Dates: start: 20111219
  3. PACLITAXEL [Suspect]
     Indication: OVARIAN CANCER
     Dosage: 238MG, LAST DOSE PRIOR TO SAE ON 03/APR/2012
     Route: 042
     Dates: start: 20111219

REACTIONS (2)
  - LYMPHOCELE [None]
  - PAIN IN EXTREMITY [None]
